FAERS Safety Report 13297509 (Version 1)
Quarter: 2017Q1

REPORT INFORMATION
  Report Type: Spontaneous
  Country: DE (occurrence: DE)
  Receive Date: 20170306
  Receipt Date: 20170306
  Transmission Date: 20170428
  Serious: Yes (Hospitalization, Other)
  Sender: FDA-Public Use
  Company Number: DE-BAXALTA-2017BLT001587

PATIENT
  Age: 3 Year
  Sex: Female

DRUGS (1)
  1. KIOVIG [Suspect]
     Active Substance: HUMAN IMMUNOGLOBULIN G
     Indication: IMMUNE THROMBOCYTOPENIC PURPURA
     Dosage: 16 G, UNK (IV DRIP FOR 14 HOURS)
     Route: 041
     Dates: start: 20170207, end: 20170208

REACTIONS (6)
  - Meningitis aseptic [Unknown]
  - Nuchal rigidity [Unknown]
  - Headache [Unknown]
  - Photophobia [Unknown]
  - Vomiting [Unknown]
  - Headache [Unknown]

NARRATIVE: CASE EVENT DATE: 2017
